FAERS Safety Report 11504647 (Version 1)
Quarter: 2015Q3

REPORT INFORMATION
  Report Type: Spontaneous
  Country: US (occurrence: US)
  Receive Date: 20150915
  Receipt Date: 20150915
  Transmission Date: 20151125
  Serious: No
  Sender: FDA-Public Use
  Company Number: US-ROCHE-797731

PATIENT
  Sex: Male

DRUGS (3)
  1. PEGASYS [Suspect]
     Active Substance: PEGINTERFERON ALFA-2A
     Indication: CHRONIC HEPATITIS C
     Dosage: REPORTED AS 180 MCG/WEEK
     Route: 058
  2. INCIVO [Concomitant]
     Active Substance: TELAPREVIR
     Indication: CHRONIC HEPATITIS C
     Route: 065
     Dates: start: 20110805, end: 20110815
  3. RIBASPHERE [Suspect]
     Active Substance: RIBAVIRIN
     Indication: CHRONIC HEPATITIS C
     Dosage: REPORTED AS 1200 MG/DAY DIVIDED DOSES
     Route: 048

REACTIONS (3)
  - Pain [Unknown]
  - Chills [Unknown]
  - Insomnia [Unknown]
